FAERS Safety Report 6049291-4 (Version None)
Quarter: 2009Q1

REPORT INFORMATION
  Report Type: 
  Country: None (occurrence: None)
  Receive Date: 20090123
  Receipt Date: 20090114
  Transmission Date: 20090719
  Serious: Yes (Hospitalization)
  Sender: FDA-Public Use
  Company Number: BR-ROXANE LABORATORIES, INC.-2009-RO-00066RO

PATIENT
  Age: 13 Year
  Sex: Female

DRUGS (6)
  1. METHOTREXATE [Suspect]
     Route: 042
  2. LEUCOVORIN CALCIUM [Suspect]
  3. ADRIAMYCIN PFS [Concomitant]
     Indication: OSTEOSARCOMA LOCALISED
  4. CISPLATIN [Concomitant]
     Indication: OSTEOSARCOMA LOCALISED
  5. BROAD ANTIBIOTICS [Concomitant]
     Indication: PYREXIA
  6. BROAD ANTIBIOTICS [Concomitant]
     Indication: NEUTROPENIA

REACTIONS (7)
  - CRYING [None]
  - GRAND MAL CONVULSION [None]
  - MUCOSAL INFLAMMATION [None]
  - NEUTROPENIA [None]
  - PANCYTOPENIA [None]
  - RENAL FAILURE ACUTE [None]
  - VOMITING [None]
